FAERS Safety Report 14724013 (Version 1)
Quarter: 2018Q2

REPORT INFORMATION
  Report Type: Report from Study
  Country: US (occurrence: BR)
  Receive Date: 20180405
  Receipt Date: 20180405
  Transmission Date: 20180711
  Serious: Yes (Other)
  Sender: FDA-Public Use
  Company Number: US-SUNOVION-2018SUN001232

PATIENT
  Sex: Female
  Weight: 98 kg

DRUGS (3)
  1. MIFLASONE [Concomitant]
     Active Substance: BECLOMETHASONE DIPROPIONATE
     Dosage: 400 MG, UNK
  2. FLUIR [Concomitant]
     Active Substance: FORMOTEROL FUMARATE
     Dosage: 12 ?G, UNK
  3. INDACATEROL [Suspect]
     Active Substance: INDACATEROL
     Indication: ASTHMA
     Dosage: 1 DF, QD (IN THE MORNING) (DISCONTINUED LESS THAN A YEAR LATE)
     Route: 055
     Dates: start: 2014

REACTIONS (3)
  - Cough [Recovered/Resolved]
  - Metastases to lung [Unknown]
  - Product use in unapproved indication [Unknown]
